FAERS Safety Report 10048410 (Version 2)
Quarter: 2014Q2

REPORT INFORMATION
  Report Type: Spontaneous
  Country: US (occurrence: US)
  Receive Date: 20140331
  Receipt Date: 20140421
  Transmission Date: 20141212
  Serious: Yes (Hospitalization, Other)
  Sender: FDA-Public Use
  Company Number: US-B.I. PHARMACEUTICALS,INC./RIDGEFIELD-2014-BI-13134BP

PATIENT
  Age: 57 Year
  Sex: Female
  Weight: 54.24 kg

DRUGS (6)
  1. SPIRIVA [Suspect]
     Indication: CHRONIC OBSTRUCTIVE PULMONARY DISEASE
     Dosage: 18 MCG
     Route: 055
     Dates: start: 201205
  2. SPIRIVA [Suspect]
     Indication: EMPHYSEMA
  3. ZOLOFT [Concomitant]
     Route: 065
  4. SIMVISTATIN [Concomitant]
     Route: 065
  5. FOLIC ACID [Concomitant]
     Route: 065
  6. ZOFRAN [Concomitant]
     Route: 065

REACTIONS (2)
  - Lung adenocarcinoma stage II [Not Recovered/Not Resolved]
  - Pulmonary mass [Recovered/Resolved]
